FAERS Safety Report 9644645 (Version 1)
Quarter: 2013Q4

REPORT INFORMATION
  Report Type: Spontaneous
  Country: JP (occurrence: JP)
  Receive Date: 20131025
  Receipt Date: 20131025
  Transmission Date: 20140711
  Serious: Yes (Other)
  Sender: FDA-Public Use
  Company Number: JP-JNJFOC-20131011578

PATIENT
  Sex: 0

DRUGS (5)
  1. REMINYL [Suspect]
     Indication: MENTAL DISORDER
     Dosage: TWICE DAILY
     Route: 048
  2. REMINYL [Suspect]
     Indication: MENTAL DISORDER
     Dosage: TWICE DAILY FOR 2 WEEKS
     Route: 048
  3. REMINYL [Suspect]
     Indication: MENTAL DISORDER
     Route: 048
  4. REMINYL [Suspect]
     Indication: MENTAL DISORDER
     Route: 048
  5. REMINYL [Suspect]
     Indication: MENTAL DISORDER
     Dosage: TWICE DAILY. 31 DAYS
     Route: 048

REACTIONS (2)
  - Psychiatric symptom [Unknown]
  - Treatment noncompliance [Unknown]
